FAERS Safety Report 22309758 (Version 1)
Quarter: 2023Q2

REPORT INFORMATION
  Report Type: Spontaneous
  Country: US (occurrence: None)
  Receive Date: 20230510
  Receipt Date: 20230510
  Transmission Date: 20230721
  Serious: Yes (Other)
  Sender: FDA-Public Use
  Company Number: None

PATIENT
  Age: 32 Year
  Sex: Female
  Weight: 75 kg

DRUGS (1)
  1. ABILIFY MAINTENA [Suspect]
     Active Substance: ARIPIPRAZOLE

REACTIONS (7)
  - Chest pain [None]
  - Vision blurred [None]
  - Dizziness [None]
  - Suicidal ideation [None]
  - Anger [None]
  - Weight increased [None]
  - Self esteem decreased [None]

NARRATIVE: CASE EVENT DATE: 20210124
